FAERS Safety Report 9269925 (Version 1)
Quarter: 2013Q2

REPORT INFORMATION
  Report Type: Spontaneous
  Country: NL (occurrence: NL)
  Receive Date: 20130503
  Receipt Date: 20130503
  Transmission Date: 20140414
  Serious: Yes (Other)
  Sender: FDA-Public Use
  Company Number: NL-UCBSA-084578

PATIENT
  Age: 82 Year
  Sex: Male

DRUGS (6)
  1. KEPPRA [Suspect]
     Indication: PETIT MAL EPILEPSY
     Route: 048
     Dates: start: 201212, end: 20121211
  2. LEVODOPA [Interacting]
     Indication: PARKINSON^S DISEASE
     Route: 048
     Dates: start: 2012
  3. HALDOL [Interacting]
     Indication: DELIRIUM
     Dosage: 50MG/ML AMPUL; 1 TIME EVERY 1 DAY
     Dates: start: 20121209, end: 20121209
  4. FRISIUM [Concomitant]
     Route: 048
     Dates: start: 2012
  5. EXELON [Concomitant]
     Indication: DEMENTIA
     Dosage: 3,4,5 MG; 1 TIME PER DAY
     Dates: start: 2012
  6. PARACETAMOL [Concomitant]
     Dosage: 500 MG; 2 TABLETS; 4 TIMES PER 1 DAY
     Route: 048
     Dates: start: 2012

REACTIONS (6)
  - Extrapyramidal disorder [Recovering/Resolving]
  - Gait disturbance [Recovering/Resolving]
  - Muscular weakness [Recovering/Resolving]
  - Hallucination [Unknown]
  - Feeling abnormal [Unknown]
  - Drug interaction [Unknown]
